FAERS Safety Report 17949019 (Version 1)
Quarter: 2020Q2

REPORT INFORMATION
  Report Type: Spontaneous
  Country: US (occurrence: US)
  Receive Date: 20200625
  Receipt Date: 20200625
  Transmission Date: 20200714
  Serious: No
  Sender: FDA-Public Use
  Company Number: US-ROCHE-2561142

PATIENT
  Sex: Female
  Weight: 45.4 kg

DRUGS (1)
  1. KLONOPIN [Suspect]
     Active Substance: CLONAZEPAM
     Indication: DYSTONIA
     Route: 065

REACTIONS (4)
  - Off label use [Unknown]
  - Prescription drug used without a prescription [Unknown]
  - Intentional product use issue [Unknown]
  - No adverse event [Unknown]
